FAERS Safety Report 9697044 (Version 3)
Quarter: 2013Q4

REPORT INFORMATION
  Report Type: Report from Study
  Country: US (occurrence: US)
  Receive Date: 20131120
  Receipt Date: 20131213
  Transmission Date: 20140711
  Serious: Yes (Hospitalization)
  Sender: FDA-Public Use
  Company Number: US-ROCHE-1305444

PATIENT
  Sex: Female

DRUGS (17)
  1. LUCENTIS [Suspect]
     Indication: MACULAR DEGENERATION
     Route: 065
  2. BETADINE [Suspect]
     Indication: PRODUCT USED FOR UNKNOWN INDICATION
     Route: 065
  3. ACTOS [Concomitant]
  4. ALPRAZOLAM [Concomitant]
     Dosage: 2 TIMES A DAY
     Route: 065
  5. LIPITOR [Concomitant]
     Dosage: DAILY
     Route: 065
  6. VIVELLE [Concomitant]
     Dosage: 2 A WEEK
     Route: 065
  7. FLUTICASONE [Concomitant]
     Dosage: TWICE A DAY
     Route: 065
  8. ADVAIR [Concomitant]
     Dosage: 2 PUFFS A DAY
     Route: 065
  9. GABAPENTIN [Concomitant]
     Dosage: THREE TIMES A DAY
     Route: 065
  10. LANSOPRAZOLE [Concomitant]
  11. LEVOTHYROXINE [Concomitant]
     Dosage: DAILY
     Route: 065
  12. NAPROXEN [Concomitant]
     Dosage: TWICE A DAY
     Route: 065
  13. HYDROCHLOROTHIAZIDE [Concomitant]
     Dosage: DAILY
     Route: 065
  14. METFORMIN [Concomitant]
     Dosage: TWICE DAILY
     Route: 065
  15. OXYGEN [Concomitant]
  16. TRAZODONE [Concomitant]
     Dosage: AT BEDTIME
     Route: 065
  17. PIOGLITAZONE [Concomitant]

REACTIONS (5)
  - Arthritis [Unknown]
  - Arthritis [Unknown]
  - Vision blurred [Unknown]
  - Eye pain [Unknown]
  - Injection site pain [Unknown]
